FAERS Safety Report 21192615 (Version 1)
Quarter: 2022Q3

REPORT INFORMATION
  Report Type: Spontaneous
  Country: RU (occurrence: RU)
  Receive Date: 20220810
  Receipt Date: 20220810
  Transmission Date: 20221026
  Serious: Yes (Life-Threatening)
  Sender: FDA-Public Use
  Company Number: RU-BIOGEN-2022BI01145626

PATIENT
  Age: 6 Year
  Sex: Female
  Weight: 14 kg

DRUGS (4)
  1. SPINRAZA [Suspect]
     Active Substance: NUSINERSEN
     Indication: Spinal muscular atrophy
     Route: 050
     Dates: start: 20210513, end: 20210513
  2. SPINRAZA [Suspect]
     Active Substance: NUSINERSEN
     Route: 050
     Dates: start: 20210705, end: 20210705
  3. sodium chloride 0.9%, glucose 5% [Concomitant]
     Indication: Product used for unknown indication
     Route: 050
  4. SEVOFLURANE [Concomitant]
     Active Substance: SEVOFLURANE
     Indication: Product used for unknown indication
     Dosage: 6-8VOL%, FLOW 02 6 L/MIN
     Route: 050

REACTIONS (1)
  - Hyperaemia [Recovered/Resolved]

NARRATIVE: CASE EVENT DATE: 20210514
